FAERS Safety Report 5585990-6 (Version None)
Quarter: 2007Q4

REPORT INFORMATION
  Report Type: 
  Country: None (occurrence: None)
  Receive Date: 20071203
  Receipt Date: 20070908
  Transmission Date: 20080405
  Serious: Yes (Other)
  Sender: FDA-Public Use
  Company Number: 2007065049

PATIENT
  Age: 70 Year
  Sex: Female
  Weight: 96.2 kg

DRUGS (3)
  1. ZYVOX [Suspect]
     Dosage: 1200 MG (600 MG,1 IN 12 HR),INTRAVENOUS
     Route: 042
     Dates: start: 20070622, end: 20070802
  2. HEPARIN [Concomitant]
  3. SODIUM CHLORIDE 0.9% [Concomitant]

REACTIONS (1)
  - PANCYTOPENIA [None]
